FAERS Safety Report 5397855-3 (Version None)
Quarter: 2007Q3

REPORT INFORMATION
  Report Type: 
  Country: None (occurrence: None)
  Receive Date: 20070723
  Receipt Date: 20070723
  Transmission Date: 20080115
  Serious: No
  Sender: FDA-Public Use
  Company Number: None

PATIENT
  Sex: Male
  Weight: 39.2 kg

DRUGS (1)
  1. DESMOPRESSIN ACETATE [Suspect]
     Indication: PLATELET FUNCTION TEST ABNORMAL
     Dosage: 12 MCG  X1  IV DRIP
     Route: 041
     Dates: start: 20070327, end: 20070327

REACTIONS (4)
  - CHEST DISCOMFORT [None]
  - DYSPNOEA [None]
  - HEADACHE [None]
  - HYPOTENSION [None]
